FAERS Safety Report 6730215-9 (Version None)
Quarter: 2010Q2

REPORT INFORMATION
  Report Type: 
  Country: None (occurrence: None)
  Receive Date: 20100518
  Receipt Date: 20091124
  Transmission Date: 20101027
  Serious: No
  Sender: FDA-Public Use
  Company Number: US-TYCO HEALTHCARE/MALLINCKRODT-T200902226

PATIENT
  Sex: Female

DRUGS (21)
  1. METHYLIN ER [Suspect]
     Indication: ATTENTION DEFICIT/HYPERACTIVITY DISORDER
     Dosage: 20 MG, QD
     Route: 048
     Dates: start: 20091101
  2. RITALIN [Concomitant]
     Dosage: 20 MG, QID
  3. ATIVAN [Concomitant]
     Dosage: 1 MG, QD PRN
  4. NEXIUM [Concomitant]
     Dosage: 40 MG, QD
  5. DEPAKOTE [Concomitant]
     Dosage: 125 MG,  TWO EVERY AM
  6. SKELAXIN [Concomitant]
     Dosage: 800 UNK, BID
  7. ALBUTEROL [Concomitant]
  8. SPIRIVA [Concomitant]
  9. THEOPHYLLINE [Concomitant]
     Dosage: 200 MG, UNK
  10. ADVIL LIQUI-GELS [Concomitant]
     Dosage: 400 MG, PRN
  11. PREDNISONE [Concomitant]
     Dosage: 60 MG, QD
  12. POLY-IRON                          /01214501/ [Concomitant]
     Dosage: 150 MG, QD
  13. MULTI-VITAMINS [Concomitant]
     Dosage: 1 TABLET DAILY
  14. FISH OIL [Concomitant]
     Dosage: UNK, BID
  15. LOVAZA [Concomitant]
     Dosage: UNK, QD
  16. CALCIUM [Concomitant]
     Dosage: 500 MG, QD
  17. ASPIRIN [Concomitant]
     Dosage: 81 MG, QD
  18. VITAMIN C                          /00008001/ [Concomitant]
     Dosage: 1 TABLET, QD
  19. ABILIFY [Concomitant]
     Dosage: 15 MG, HS
  20. LEXAPRO [Concomitant]
     Dosage: 20 MG, QD
  21. DETROL LA [Concomitant]

REACTIONS (2)
  - DRUG INEFFECTIVE [None]
  - SOMNOLENCE [None]
